FAERS Safety Report 19676317 (Version 1)
Quarter: 2021Q3

REPORT INFORMATION
  Report Type: Spontaneous
  Country: US (occurrence: US)
  Receive Date: 20210809
  Receipt Date: 20210809
  Transmission Date: 20211014
  Serious: No
  Sender: FDA-Public Use
  Company Number: US-RISING PHARMA HOLDINGS, INC.-2021RIS000041

PATIENT
  Sex: Male

DRUGS (1)
  1. ALOSETRON HYDROCHLORIDE. [Suspect]
     Active Substance: ALOSETRON HYDROCHLORIDE
     Indication: IRRITABLE BOWEL SYNDROME
     Dosage: 1/4 OF PILL
     Route: 048
     Dates: start: 20210307, end: 20210410

REACTIONS (3)
  - Medication error [Unknown]
  - Drug ineffective [Unknown]
  - Constipation [Unknown]
